FAERS Safety Report 4453727-X (Version None)
Quarter: 2004Q3

REPORT INFORMATION
  Report Type: 
  Country: None (occurrence: None)
  Receive Date: 20040920
  Receipt Date: 20040914
  Transmission Date: 20050211
  Serious: Yes (Hospitalization)
  Sender: FDA-Public Use
  Company Number: PHBS2004BE12164

PATIENT
  Age: 48 Year
  Sex: Female

DRUGS (8)
  1. DIOVAN [Suspect]
     Dosage: 80 MG/DAY
     Route: 048
     Dates: start: 20040101, end: 20040101
  2. MANIPREX [Suspect]
     Dates: end: 20040101
  3. DUOVENT [Concomitant]
  4. INDERAL [Concomitant]
  5. L-THYROXIN [Concomitant]
     Dosage: 75 MG, UNK
  6. NOZINAN [Concomitant]
  7. REMERGON [Concomitant]
  8. STAURODORM [Concomitant]

REACTIONS (5)
  - BLOOD CREATININE INCREASED [None]
  - CONDITION AGGRAVATED [None]
  - CREATININE RENAL CLEARANCE DECREASED [None]
  - RENAL FAILURE [None]
  - RESPIRATORY TRACT INFECTION [None]
